FAERS Safety Report 8274996-4 (Version None)
Quarter: 2012Q2

REPORT INFORMATION
  Report Type: 
  Country: None (occurrence: None)
  Receive Date: 20120411
  Receipt Date: 20120402
  Transmission Date: 20120825
  Serious: Yes (Other)
  Sender: FDA-Public Use
  Company Number: DE-ROCHE-1056105

PATIENT
  Sex: Male

DRUGS (1)
  1. MABTHERA [Suspect]
     Indication: POLYARTHRITIS
     Dosage: 1 SEPARATE DOSE
     Route: 042
     Dates: start: 20120322

REACTIONS (3)
  - NAUSEA [None]
  - RESTLESSNESS [None]
  - PALLOR [None]
